FAERS Safety Report 23902293 (Version 3)
Quarter: 2024Q4

REPORT INFORMATION
  Report Type: Report from Study
  Country: US (occurrence: US)
  Receive Date: 20240527
  Receipt Date: 20241015
  Transmission Date: 20250115
  Serious: Yes (Disabling)
  Sender: ABBVIE
  Company Number: US-ABBVIE-5771856

PATIENT
  Age: 61 Year
  Sex: Female
  Weight: 73 kg

DRUGS (3)
  1. HUMIRA [Suspect]
     Active Substance: ADALIMUMAB
     Indication: Psoriatic arthropathy
     Dosage: FORM STRENGTH: 40 MG/CITRATE FREE DAY 8
     Route: 058
  2. HUMIRA [Suspect]
     Active Substance: ADALIMUMAB
     Indication: Rheumatoid arthritis
     Dosage: FORM STRENGTH: 40 MG/CITRATE FREE
     Route: 058
     Dates: end: 202307
  3. PREDNISONE [Concomitant]
     Active Substance: PREDNISONE
     Indication: Swelling
     Route: 048

REACTIONS (12)
  - Disability [Unknown]
  - Condition aggravated [Not Recovered/Not Resolved]
  - Mobility decreased [Unknown]
  - Grip strength decreased [Unknown]
  - Post procedural complication [Unknown]
  - Dental care [Unknown]
  - Arthropathy [Not Recovered/Not Resolved]
  - Dry mouth [Unknown]
  - Limb injury [Not Recovered/Not Resolved]
  - Chest injury [Not Recovered/Not Resolved]
  - Musculoskeletal stiffness [Unknown]
  - Pain [Unknown]

NARRATIVE: CASE EVENT DATE: 20230801
